FAERS Safety Report 16158442 (Version 1)
Quarter: 2019Q2

REPORT INFORMATION
  Report Type: Spontaneous
  Country: IT (occurrence: IT)
  Receive Date: 20190404
  Receipt Date: 20190404
  Transmission Date: 20190711
  Serious: Yes (Hospitalization)
  Sender: FDA-Public Use
  Company Number: IT-JNJFOC-20190404323

PATIENT
  Age: 68 Year
  Sex: Male

DRUGS (7)
  1. APROVEL [Concomitant]
     Active Substance: IRBESARTAN
     Route: 065
  2. LASIX [Concomitant]
     Active Substance: FUROSEMIDE
     Route: 065
  3. ANTICOAGULANT CITRATE DEXTROSE SOLUTION (ACD) NOS [Concomitant]
     Active Substance: CITRIC ACID MONOHYDRATE\DEXTROSE\SODIUM CITRATE
     Route: 065
  4. BISOPROLOL FUMARATE. [Concomitant]
     Active Substance: BISOPROLOL FUMARATE
     Route: 065
  5. XARELTO [Suspect]
     Active Substance: RIVAROXABAN
     Indication: ATRIAL FIBRILLATION
     Route: 048
     Dates: start: 20180101, end: 20181210
  6. TOVANOR BREEZHALER [Concomitant]
     Active Substance: GLYCOPYRROLATE
     Route: 065
  7. AMIODAR [Concomitant]
     Active Substance: AMIODARONE
     Route: 065

REACTIONS (4)
  - Respiratory failure [Unknown]
  - Dyspnoea [Unknown]
  - Anal haemorrhage [Unknown]
  - Haemoptysis [Unknown]

NARRATIVE: CASE EVENT DATE: 20181210
